FAERS Safety Report 22325303 (Version 1)
Quarter: 2023Q2

REPORT INFORMATION
  Report Type: Spontaneous
  Country: US (occurrence: US)
  Receive Date: 20230516
  Receipt Date: 20230516
  Transmission Date: 20230722
  Serious: Yes (Other)
  Sender: FDA-Public Use
  Company Number: US-SANOFI-01610955

PATIENT
  Sex: Female

DRUGS (1)
  1. DULCOLAX NOS [Suspect]
     Active Substance: BISACODYL OR DOCUSATE SODIUM
     Dosage: 5 MG

REACTIONS (5)
  - Rectal haemorrhage [Unknown]
  - Muscle spasms [Unknown]
  - Heart rate increased [Unknown]
  - Hypertension [Unknown]
  - Colitis [Unknown]
